FAERS Safety Report 10268776 (Version 1)
Quarter: 2014Q2

REPORT INFORMATION
  Report Type: Spontaneous
  Country: US (occurrence: US)
  Receive Date: 20140630
  Receipt Date: 20140630
  Transmission Date: 20141212
  Serious: Yes (Other)
  Sender: FDA-Public Use
  Company Number: US-GLAXOSMITHKLINE-A1076313A

PATIENT
  Age: 71 Year
  Sex: Female

DRUGS (3)
  1. ADVAIR HFA [Suspect]
     Indication: CHRONIC OBSTRUCTIVE PULMONARY DISEASE
     Route: 065
     Dates: start: 20111005
  2. VENTOLIN [Suspect]
     Indication: DYSPNOEA
  3. OXYGEN [Concomitant]

REACTIONS (4)
  - Sinus disorder [Unknown]
  - Bronchitis [Unknown]
  - Aphonia [Unknown]
  - Oxygen supplementation [Unknown]
